FAERS Safety Report 25452609 (Version 1)
Quarter: 2025Q2

REPORT INFORMATION
  Report Type: Spontaneous
  Country: FR (occurrence: FR)
  Receive Date: 20250618
  Receipt Date: 20250618
  Transmission Date: 20250716
  Serious: Yes (Hospitalization)
  Sender: MERCK SHARP & DOHME LLC
  Company Number: None

PATIENT
  Age: 61 Year
  Sex: Female
  Weight: 93 kg

DRUGS (18)
  1. METFORMIN\SITAGLIPTIN [Suspect]
     Active Substance: METFORMIN\SITAGLIPTIN
     Indication: Type 2 diabetes mellitus
     Dosage: LONG-TERM
     Route: 048
     Dates: end: 20250407
  2. OXYCODONE HYDROCHLORIDE [Suspect]
     Active Substance: OXYCODONE HYDROCHLORIDE
     Indication: Procedural pain
     Route: 048
     Dates: start: 20250327, end: 20250409
  3. LEVOTHYROXINE [Concomitant]
     Active Substance: LEVOTHYROXINE
  4. CINCHONIDINE\CINCHONINE\QUINIDINE\QUININE [Suspect]
     Active Substance: CINCHONIDINE\CINCHONINE\QUINIDINE\QUININE
     Indication: Restless legs syndrome
     Dosage: 0.5CP 2/DAY?LONG COURSE
     Route: 048
     Dates: end: 20250409
  5. ESOMEPRAZOLE [Concomitant]
     Active Substance: ESOMEPRAZOLE
  6. HYDROCHLOROTHIAZIDE\IRBESARTAN [Concomitant]
     Active Substance: HYDROCHLOROTHIAZIDE\IRBESARTAN
  7. TOUJEO [Concomitant]
     Active Substance: INSULIN GLARGINE
  8. DAPAGLIFLOZIN [Concomitant]
     Active Substance: DAPAGLIFLOZIN
  9. ZOLMITRIPTAN [Concomitant]
     Active Substance: ZOLMITRIPTAN
  10. OXYCODONE HYDROCHLORIDE [Concomitant]
     Active Substance: OXYCODONE HYDROCHLORIDE
  11. PIZOTIFENE (MALATE) [Concomitant]
  12. FLUOXETINE HYDROCHLORIDE [Suspect]
     Active Substance: FLUOXETINE HYDROCHLORIDE
     Indication: Depression
     Dosage: LONG-TERM
     Route: 048
     Dates: end: 20250407
  13. PANTOPRAZOLE [Suspect]
     Active Substance: PANTOPRAZOLE
     Indication: Gastrooesophageal reflux disease
     Route: 048
     Dates: start: 20250401, end: 20250407
  14. ALPRAZOLAM [Concomitant]
     Active Substance: ALPRAZOLAM
  15. BILASTINE [Concomitant]
     Active Substance: BILASTINE
  16. ROSUVASTATIN [Concomitant]
     Active Substance: ROSUVASTATIN
  17. NEBIVOLOL [Concomitant]
     Active Substance: NEBIVOLOL
  18. PRAMIPEXOLE [Concomitant]
     Active Substance: PRAMIPEXOLE

REACTIONS (1)
  - Agranulocytosis [Recovered/Resolved]

NARRATIVE: CASE EVENT DATE: 20250407
